FAERS Safety Report 9853818 (Version 1)
Quarter: 2014Q1

REPORT INFORMATION
  Report Type: Spontaneous
  Country: US (occurrence: US)
  Receive Date: 20140129
  Receipt Date: 20140129
  Transmission Date: 20141002
  Serious: No
  Sender: FDA-Public Use
  Company Number: US-GLAXOSMITHKLINE-A1045771A

PATIENT
  Age: 60 Year
  Sex: Female

DRUGS (2)
  1. BUPROPION [Suspect]
     Indication: DEPRESSION
     Route: 065
  2. SERTRALINE HCL [Suspect]
     Indication: DEPRESSION
     Dosage: 100MG UNKNOWN
     Route: 065
     Dates: start: 20120709

REACTIONS (2)
  - Drug ineffective [Unknown]
  - Depression [Unknown]
